FAERS Safety Report 6083978-2 (Version None)
Quarter: 2009Q1

REPORT INFORMATION
  Report Type: 
  Country: None (occurrence: None)
  Receive Date: 20090217
  Receipt Date: 20090217
  Transmission Date: 20090719
  Serious: Yes (Other)
  Sender: FDA-Public Use
  Company Number: None

PATIENT
  Age: 67 Year
  Sex: Male
  Weight: 86.1834 kg

DRUGS (1)
  1. CORGARD [Suspect]
     Indication: HYPERTENSION
     Dosage: 1 AND 1/2 QD PO
     Route: 048
     Dates: start: 20070101, end: 20090213

REACTIONS (1)
  - HEART RATE IRREGULAR [None]
